FAERS Safety Report 17246687 (Version 4)
Quarter: 2020Q1

REPORT INFORMATION
  Report Type: Spontaneous
  Country: US (occurrence: US)
  Receive Date: 20200108
  Receipt Date: 20200227
  Transmission Date: 20200409
  Serious: No
  Sender: FDA-Public Use
  Company Number: US-PFIZER INC-2020003995

PATIENT
  Age: 82 Year
  Sex: Female
  Weight: 53.98 kg

DRUGS (3)
  1. ADVIL [Suspect]
     Active Substance: IBUPROFEN
     Indication: ARTHRITIS
     Dosage: 400 MG, EVERY 4 HRS (200 MG, 2 TABLETS EVERY 4 HRS)
     Route: 048
  2. ADVIL [Suspect]
     Active Substance: IBUPROFEN
     Indication: BACK PAIN
     Dosage: 600 MG, DAILY (3 OF THE ADVIL TABLETS)
     Route: 048
  3. ADVIL [Suspect]
     Active Substance: IBUPROFEN
     Indication: HEADACHE

REACTIONS (2)
  - Drug ineffective [Unknown]
  - Overdose [Unknown]
